FAERS Safety Report 9170216 (Version 1)
Quarter: 2013Q1

REPORT INFORMATION
  Report Type: Report from Study
  Country: AU (occurrence: AU)
  Receive Date: 20130319
  Receipt Date: 20130319
  Transmission Date: 20140127
  Serious: Yes (Other)
  Sender: FDA-Public Use
  Company Number: PHHY2013AU026484

PATIENT
  Sex: Male

DRUGS (4)
  1. CLOZAPINE [Suspect]
     Dosage: UNK
  2. RAMIPRIL [Concomitant]
     Dosage: UNK
  3. TIOTROPIUM [Concomitant]
     Dosage: UNK
  4. SERETIDE [Concomitant]
     Dosage: UNK

REACTIONS (2)
  - Hyperprolactinaemia [Unknown]
  - Myocarditis [Unknown]
